FAERS Safety Report 12317329 (Version 1)
Quarter: 2016Q2

REPORT INFORMATION
  Report Type: Report from Study
  Country: FR (occurrence: FR)
  Receive Date: 20160429
  Receipt Date: 20160429
  Transmission Date: 20160815
  Serious: Yes (Hospitalization)
  Sender: FDA-Public Use
  Company Number: FR-ROCHE-1748768

PATIENT
  Sex: Female

DRUGS (6)
  1. RITUXIMAB [Suspect]
     Active Substance: RITUXIMAB
     Indication: RHEUMATOID ARTHRITIS
     Dosage: DAY 1
     Route: 042
     Dates: start: 20081010
  2. RITUXIMAB [Suspect]
     Active Substance: RITUXIMAB
     Dosage: DAY 15
     Route: 042
     Dates: start: 20091217
  3. CORTANCYL [Concomitant]
     Active Substance: PREDNISONE
     Route: 065
  4. RITUXIMAB [Suspect]
     Active Substance: RITUXIMAB
     Dosage: DAY 15
     Route: 042
     Dates: start: 20081024
  5. RITUXIMAB [Suspect]
     Active Substance: RITUXIMAB
     Dosage: DAY 1
     Route: 042
     Dates: start: 20091203
  6. CORTANCYL [Concomitant]
     Active Substance: PREDNISONE
     Route: 065

REACTIONS (6)
  - Device related infection [Recovered/Resolved]
  - Tendon rupture [Recovered/Resolved]
  - Fungal skin infection [Recovered/Resolved]
  - Meningoradiculitis [Unknown]
  - Device loosening [Recovered/Resolved]
  - Drug ineffective [Unknown]

NARRATIVE: CASE EVENT DATE: 20090325
